FAERS Safety Report 7358856-9 (Version None)
Quarter: 2011Q1

REPORT INFORMATION
  Report Type: 
  Country: None (occurrence: None)
  Receive Date: 20110317
  Receipt Date: 20110310
  Transmission Date: 20110831
  Serious: Yes (Hospitalization)
  Sender: FDA-Public Use
  Company Number: B0705212A

PATIENT
  Age: 86 Year
  Sex: Female

DRUGS (3)
  1. AMOXICILLIN [Suspect]
     Dosage: 8G PER DAY
     Route: 042
     Dates: start: 20101001, end: 20101027
  2. ZOVIRAX [Suspect]
     Dosage: 1.5G PER DAY
     Route: 042
     Dates: start: 20101001, end: 20101027
  3. ROVAMYCINE [Suspect]
     Dosage: 5IU6 PER DAY
     Route: 042
     Dates: start: 20101001, end: 20101027

REACTIONS (1)
  - RENAL FAILURE ACUTE [None]
